FAERS Safety Report 10726930 (Version 2)
Quarter: 2015Q1

REPORT INFORMATION
  Report Type: Report from Study
  Country: US (occurrence: US)
  Receive Date: 20150121
  Receipt Date: 20150128
  Transmission Date: 20150721
  Serious: Yes (Death)
  Sender: FDA-Public Use
  Company Number: US-PFIZER INC-2015019841

PATIENT
  Age: 74 Year
  Sex: Female
  Weight: 92 kg

DRUGS (9)
  1. TOFACITINIB CITRATE [Suspect]
     Active Substance: TOFACITINIB CITRATE
     Indication: PSORIASIS
     Dosage: 10 MG, 2X/DAY
     Route: 048
     Dates: start: 20121129, end: 20141223
  2. LEVOTHYROXINE [Concomitant]
     Active Substance: LEVOTHYROXINE
     Indication: HYPOTHYROIDISM
     Dosage: 88 MCG, 1X/DAY
     Route: 048
     Dates: start: 1947
  3. OXYCODONE [Concomitant]
     Active Substance: OXYCODONE
     Indication: UPPER LIMB FRACTURE
     Dosage: 5 MG, AS NEEDED
     Route: 048
     Dates: start: 20140415
  4. CHOLESTYRAMINE. [Concomitant]
     Active Substance: CHOLESTYRAMINE
     Indication: GALLBLADDER DISORDER
     Dosage: 4 G, 2X/DAY
     Route: 048
     Dates: start: 20131201
  5. TRAMADOL [Concomitant]
     Active Substance: TRAMADOL
     Indication: UPPER LIMB FRACTURE
     Dosage: 50 MG, AS NEEDED
     Route: 048
     Dates: start: 20140415
  6. METOPROLOL [Concomitant]
     Active Substance: METOPROLOL
     Indication: AORTIC VALVE INCOMPETENCE
     Dosage: 25 MG, 1X/DAY
     Route: 048
     Dates: start: 2010
  7. PROZAC [Concomitant]
     Active Substance: FLUOXETINE HYDROCHLORIDE
     Indication: DEPRESSION
     Dosage: 60 MG, 1X/DAY
     Route: 048
     Dates: start: 201201
  8. TEMAZEPAM. [Concomitant]
     Active Substance: TEMAZEPAM
     Indication: INSOMNIA
     Dosage: 15 MG,EVERY NIGHT AT BEDTIME (QHS), AS NEEDED
     Route: 048
     Dates: start: 20140501
  9. OXYCODONE [Concomitant]
     Active Substance: OXYCODONE
     Dosage: 10 MG, AS NEEDED
     Route: 048
     Dates: start: 20140415

REACTIONS (1)
  - Death [Fatal]

NARRATIVE: CASE EVENT DATE: 20141223
